FAERS Safety Report 21311486 (Version 3)
Quarter: 2022Q4

REPORT INFORMATION
  Report Type: Other
  Country: FR (occurrence: FR)
  Receive Date: 20220909
  Receipt Date: 20221007
  Transmission Date: 20230113
  Serious: Yes (Other)
  Sender: FDA-Public Use
  Company Number: FR-ROCHE-3175765

PATIENT
  Age: 95 Year
  Sex: Female

DRUGS (2)
  1. RITUXIMAB [Suspect]
     Active Substance: RITUXIMAB
     Indication: B-cell small lymphocytic lymphoma
     Dosage: THIRD-LINE THERAPY ON D1.
     Route: 042
  2. BENDAMUSTINE [Suspect]
     Active Substance: BENDAMUSTINE
     Indication: B-cell small lymphocytic lymphoma
     Dosage: THIRD-LINE THERAPY ON D1 AND D2
     Route: 065

REACTIONS (4)
  - Acute kidney injury [Unknown]
  - Neutropenia [Unknown]
  - Off label use [Unknown]
  - Gout [Unknown]
